FAERS Safety Report 4837395-0 (Version None)
Quarter: 2005Q4

REPORT INFORMATION
  Report Type: 
  Country: None (occurrence: None)
  Receive Date: 20051122
  Receipt Date: 20051108
  Transmission Date: 20060501
  Serious: Yes (Other)
  Sender: FDA-Public Use
  Company Number: US016220

PATIENT
  Age: 24 Year
  Sex: Male

DRUGS (7)
  1. TRISENOX [Suspect]
     Indication: ACUTE PROMYELOCYTIC LEUKAEMIA
     Dosage: 0.15 MG QD INTRAVENOUS DRIP
     Route: 041
     Dates: start: 20050903, end: 20050907
  2. TRISENOX [Suspect]
     Indication: ACUTE PROMYELOCYTIC LEUKAEMIA
     Dosage: 0.15 MG QD INTRAVENOUS DRIP
     Route: 041
     Dates: start: 20050909, end: 20051015
  3. VANCOMYCIN HYDROCHLORIDE [Concomitant]
  4. MICAFUNGIN SODIUM [Concomitant]
  5. BIAPENEM [Concomitant]
  6. AMIKACIN SULFATE [Concomitant]
  7. MIRIMOSTIM [Concomitant]

REACTIONS (5)
  - DELIRIUM [None]
  - DEPRESSED LEVEL OF CONSCIOUSNESS [None]
  - ELECTROCARDIOGRAM QT CORRECTED INTERVAL PROLONGED [None]
  - ELECTROCARDIOGRAM QT PROLONGED [None]
  - HYPOAESTHESIA [None]
